FAERS Safety Report 19977394 (Version 2)
Quarter: 2022Q4

REPORT INFORMATION
  Report Type: Spontaneous
  Country: US (occurrence: US)
  Receive Date: 20211021
  Receipt Date: 20221213
  Transmission Date: 20230113
  Serious: No
  Sender: FDA-Public Use
  Company Number: US-JNJFOC-20211018508

PATIENT
  Sex: Male

DRUGS (1)
  1. IMODIUM MULTI-SYMPTOM RELIEF [Suspect]
     Active Substance: DIMETHICONE\LOPERAMIDE HYDROCHLORIDE
     Indication: Diarrhoea
     Dosage: JUST 1 WHEN NEEDED
     Route: 048

REACTIONS (3)
  - Choking sensation [Recovered/Resolved]
  - Product quality issue [Unknown]
  - Product physical issue [Unknown]
